FAERS Safety Report 11904604 (Version 2)
Quarter: 2016Q1

REPORT INFORMATION
  Report Type: Spontaneous
  Country: US (occurrence: US)
  Receive Date: 20160108
  Receipt Date: 20160113
  Transmission Date: 20160526
  Serious: No
  Sender: FDA-Public Use
  Company Number: US-PFIZER INC-2015444972

PATIENT
  Age: 56 Year
  Sex: Male
  Weight: 59 kg

DRUGS (10)
  1. VALTREX [Concomitant]
     Active Substance: VALACYCLOVIR HYDROCHLORIDE
  2. RAPAMUNE [Suspect]
     Active Substance: SIROLIMUS
     Dosage: UNK
     Dates: start: 2015
  3. FLU SHOT [Suspect]
     Active Substance: INFLUENZA VIRUS VACCINE
  4. POTASSIUM [Concomitant]
     Active Substance: POTASSIUM
  5. MAGNESIUM [Concomitant]
     Active Substance: MAGNESIUM
  6. LEVOTHYROXINE. [Concomitant]
     Active Substance: LEVOTHYROXINE
  7. ACTIGALL [Concomitant]
     Active Substance: URSODIOL
  8. FLUCONAZOLE. [Concomitant]
     Active Substance: FLUCONAZOLE
  9. NEXIUM [Concomitant]
     Active Substance: ESOMEPRAZOLE MAGNESIUM
  10. MAGNESIUM PLUS [Concomitant]

REACTIONS (5)
  - Decreased appetite [Not Recovered/Not Resolved]
  - Lung disorder [Unknown]
  - Asthenia [Unknown]
  - Malaise [Unknown]
  - Fatigue [Not Recovered/Not Resolved]
